FAERS Safety Report 16560138 (Version 2)
Quarter: 2019Q3

REPORT INFORMATION
  Report Type: Spontaneous
  Country: US (occurrence: US)
  Receive Date: 20190711
  Receipt Date: 20190903
  Transmission Date: 20191004
  Serious: No
  Sender: FDA-Public Use
  Company Number: US-SA-2019SA178532

PATIENT
  Age: 79 Year
  Sex: Female

DRUGS (1)
  1. DULCOLAX LIQUID CHERRY (MAGNESIUM HYDROXIDE) [Suspect]
     Active Substance: MAGNESIUM HYDROXIDE
     Dosage: 30 ML, 1X
     Dates: start: 20190626

REACTIONS (3)
  - Drug effect faster than expected [Unknown]
  - Burning mouth syndrome [Unknown]
  - Dry mouth [Unknown]
